FAERS Safety Report 8808150 (Version 1)
Quarter: 2012Q4

REPORT INFORMATION
  Report Type: 
  Country: US (occurrence: US)
  Receive Date: 20120925
  Receipt Date: 20120925
  Transmission Date: 20130627
  Serious: No
  Sender: FDA-Public Use
  Company Number: US-ASTRAZENECA-2012SE65633

PATIENT
  Age: 52 Year
  Sex: Female

DRUGS (24)
  1. NEXIUM [Suspect]
     Route: 048
  2. LISINOPRIL [Suspect]
     Route: 048
  3. SEROQUEL XR [Suspect]
     Route: 048
  4. ASPIRIN [Concomitant]
  5. VALIUM [Concomitant]
  6. ERYTHROMYCIN [Concomitant]
  7. OXYCODONE [Concomitant]
  8. HYDROMORPHONE [Concomitant]
  9. INSULIN SYRINGE [Concomitant]
  10. ALBUTEROL HFA [Concomitant]
  11. SERTRALINE [Concomitant]
  12. DULOXETINE HCL [Concomitant]
  13. VERAPAMIL [Concomitant]
  14. LEVOTHYROXINE SODIUM [Concomitant]
  15. GABAPENTIN [Concomitant]
  16. OXYGEN [Concomitant]
  17. WARFARIN SODIUM [Concomitant]
  18. FLUTICASONE SALMETROL [Concomitant]
  19. IMITREX [Concomitant]
  20. LASIX [Concomitant]
  21. ATIVAN [Concomitant]
  22. VITAMIN D [Concomitant]
  23. LANTUS [Concomitant]
  24. ONETOUCH LANCETS MISC [Concomitant]

REACTIONS (2)
  - Breakthrough pain [Unknown]
  - Intentional drug misuse [Unknown]
